FAERS Safety Report 5102775-5 (Version None)
Quarter: 2006Q3

REPORT INFORMATION
  Report Type: 
  Country: None (occurrence: None)
  Receive Date: 20060907
  Receipt Date: 20060830
  Transmission Date: 20061208
  Serious: Yes (Other)
  Sender: FDA-Public Use
  Company Number: 2006052953

PATIENT
  Age: 30 Year
  Sex: Female

DRUGS (5)
  1. DEPO-PROVERA [Suspect]
     Indication: CONTRACEPTION
     Dosage: 150 MG (150 MG, SINGLE INJECTION)
     Dates: start: 20060412, end: 20060412
  2. ALBUTEROL SPIROS [Concomitant]
  3. ATROVENT [Concomitant]
  4. BEROTEC [Concomitant]
  5. APEVITIN BC (ASCORBIC ACID, CYPROHEPTADINE HYDROCHLORIDE, NICOTINAMIDE [Concomitant]

REACTIONS (5)
  - ANOREXIA NERVOSA [None]
  - ASTHMA [None]
  - CONDITION AGGRAVATED [None]
  - INFLUENZA [None]
  - MENSTRUATION IRREGULAR [None]
